FAERS Safety Report 12768660 (Version 2)
Quarter: 2016Q4

REPORT INFORMATION
  Report Type: Spontaneous
  Country: JP (occurrence: JP)
  Receive Date: 20160921
  Receipt Date: 20161006
  Transmission Date: 20170207
  Serious: Yes (Other)
  Sender: FDA-Public Use
  Company Number: JP-PFIZER INC-2016437099

PATIENT
  Age: 91 Year
  Sex: Female

DRUGS (10)
  1. CLARITH [Suspect]
     Active Substance: CLARITHROMYCIN
     Dosage: UNK
     Route: 048
  2. TAKEPRON OD [Suspect]
     Active Substance: LANSOPRAZOLE
     Indication: GASTROOESOPHAGEAL REFLUX DISEASE
     Dosage: 15 MG, UNK
     Route: 048
     Dates: end: 20160831
  3. OPALMON [Suspect]
     Active Substance: LIMAPROST
     Dosage: UNK
     Route: 048
  4. LYRICA [Suspect]
     Active Substance: PREGABALIN
     Dosage: UNK
     Route: 048
  5. CELECOX [Suspect]
     Active Substance: CELECOXIB
     Dosage: UNK
     Route: 048
  6. THYRADIN-S [Suspect]
     Active Substance: LEVOTHYROXINE
     Dosage: UNK
     Route: 048
  7. LOXONIN [Suspect]
     Active Substance: LOXOPROFEN SODIUM
     Dosage: UNK
     Route: 065
  8. GASLON [Suspect]
     Active Substance: IRSOGLADINE MALEATE
     Dosage: UNK
     Route: 048
  9. CONIEL [Suspect]
     Active Substance: BENIDIPINE HYDROCHLORIDE
     Dosage: UNK
     Route: 048
  10. BIOFERMIN R [Suspect]
     Active Substance: BACILLUS SUBTILIS\LACTOBACILLUS ACIDOPHILUS\STREPTOCOCCUS FAECAIS
     Dosage: UNK
     Route: 048

REACTIONS (1)
  - Tubulointerstitial nephritis [Recovered/Resolved]

NARRATIVE: CASE EVENT DATE: 20160831
